FAERS Safety Report 19301848 (Version 1)
Quarter: 2021Q2

REPORT INFORMATION
  Report Type: Spontaneous
  Country: US (occurrence: US)
  Receive Date: 20210525
  Receipt Date: 20210525
  Transmission Date: 20210717
  Serious: No
  Sender: FDA-Public Use
  Company Number: None

PATIENT
  Sex: Female

DRUGS (1)
  1. NP THYROID [Suspect]
     Active Substance: LEVOTHYROXINE\LIOTHYRONINE

REACTIONS (6)
  - Weight increased [None]
  - Dry skin [None]
  - Alopecia [None]
  - Depression [None]
  - Recalled product administered [None]
  - Lethargy [None]

NARRATIVE: CASE EVENT DATE: 20210525
